FAERS Safety Report 7624250-6 (Version None)
Quarter: 2011Q3

REPORT INFORMATION
  Report Type: 
  Country: None (occurrence: None)
  Receive Date: 20110719
  Receipt Date: 20110719
  Transmission Date: 20111222
  Serious: Yes (Other)
  Sender: FDA-Public Use
  Company Number: None

PATIENT
  Sex: Female
  Weight: 49.8957 kg

DRUGS (1)
  1. RECLAST [Suspect]
     Dosage: 5 MG 1
     Dates: start: 20110601

REACTIONS (17)
  - PAIN [None]
  - DIARRHOEA [None]
  - INFLUENZA LIKE ILLNESS [None]
  - TEETHING [None]
  - PYREXIA [None]
  - VOMITING [None]
  - DECREASED APPETITE [None]
  - HEADACHE [None]
  - PAIN IN JAW [None]
  - NIGHT SWEATS [None]
  - CHILLS [None]
  - WEIGHT DECREASED [None]
  - OEDEMA PERIPHERAL [None]
  - FATIGUE [None]
  - MYALGIA [None]
  - NAUSEA [None]
  - ASTHENIA [None]
